FAERS Safety Report 15480756 (Version 8)
Quarter: 2019Q3

REPORT INFORMATION
  Report Type: Report from Study
  Country: JP (occurrence: JP)
  Receive Date: 20181010
  Receipt Date: 20190717
  Transmission Date: 20191004
  Serious: Yes (Death, Hospitalization, Other)
  Sender: FDA-Public Use
  Company Number: PHJP2018JP017413

PATIENT
  Age: 18 Year
  Sex: Male

DRUGS (11)
  1. MEKINIST [Suspect]
     Active Substance: TRAMETINIB DIMETHYL SULFOXIDE
     Dosage: 0.5 MG, QD
     Route: 048
     Dates: start: 20170208, end: 20170413
  2. ETOPOSIDE. [Concomitant]
     Active Substance: ETOPOSIDE
     Indication: HISTIOCYTIC SARCOMA
     Dosage: UNK, ONCE/SINGLE
     Route: 065
     Dates: start: 20170428, end: 20170430
  3. MEKINIST [Suspect]
     Active Substance: TRAMETINIB DIMETHYL SULFOXIDE
     Dosage: 2 MG, QD
     Route: 048
     Dates: start: 20170525, end: 20170730
  4. DEXAMETHASON [Concomitant]
     Active Substance: DEXAMETHASONE
     Indication: HISTIOCYTIC SARCOMA
     Dosage: UNK UNK, ONCE/SINGLE
     Route: 065
     Dates: start: 20170428, end: 20170430
  5. MEKINIST [Suspect]
     Active Substance: TRAMETINIB DIMETHYL SULFOXIDE
     Dosage: 1.5 MG, QD
     Route: 048
     Dates: start: 20170815, end: 20170903
  6. CARBOPLATIN. [Concomitant]
     Active Substance: CARBOPLATIN
     Indication: HISTIOCYTIC SARCOMA
     Dosage: UNK, ONCE/SINGLE
     Route: 065
     Dates: start: 20170428, end: 20170430
  7. MEKINIST [Suspect]
     Active Substance: TRAMETINIB DIMETHYL SULFOXIDE
     Indication: HISTIOCYTIC SARCOMA
     Dosage: 2 MG, QD
     Route: 048
     Dates: start: 20170113, end: 20170127
  8. UROMITEXAN [Concomitant]
     Active Substance: MESNA
     Indication: HISTIOCYTIC SARCOMA
     Dosage: UNK UNK, ONCE/SINGLE
     Route: 065
     Dates: start: 20170428, end: 20170430
  9. MEKINIST [Suspect]
     Active Substance: TRAMETINIB DIMETHYL SULFOXIDE
     Dosage: 1.5 MG, QD
     Route: 048
     Dates: start: 20170206, end: 20170207
  10. IFOSFAMIDE. [Concomitant]
     Active Substance: IFOSFAMIDE
     Indication: HISTIOCYTIC SARCOMA
     Dosage: UNK, ONCE/SINGLE
     Route: 065
     Dates: start: 20170428, end: 20170430
  11. MEKINIST [Suspect]
     Active Substance: TRAMETINIB DIMETHYL SULFOXIDE
     Dosage: 2 MG, QD
     Route: 048
     Dates: start: 20170904, end: 20171010

REACTIONS (10)
  - Small intestinal perforation [Fatal]
  - Abdominal pain upper [Fatal]
  - Malignant neoplasm progression [Unknown]
  - Palmar-plantar erythrodysaesthesia syndrome [Not Recovered/Not Resolved]
  - Ileus [Recovering/Resolving]
  - Dermatitis acneiform [Not Recovered/Not Resolved]
  - Hepatic function abnormal [Recovering/Resolving]
  - Histiocytic sarcoma [Unknown]
  - Pyrexia [Recovered/Resolved]
  - Large intestinal haemorrhage [Fatal]

NARRATIVE: CASE EVENT DATE: 20170127
